FAERS Safety Report 6971867-8 (Version None)
Quarter: 2010Q3

REPORT INFORMATION
  Report Type: 
  Country: None (occurrence: None)
  Receive Date: 20100908
  Receipt Date: 20100908
  Transmission Date: 20110219
  Serious: Yes (Death)
  Sender: FDA-Public Use
  Company Number: None

PATIENT
  Age: 67 Year
  Sex: Female
  Weight: 58 kg

DRUGS (1)
  1. ACTEMRA [Suspect]
     Indication: RHEUMATOID ARTHRITIS
     Dosage: 280 MG EVERY 4 WEEKS IV
     Route: 042
     Dates: start: 20100201

REACTIONS (4)
  - DIARRHOEA [None]
  - FATIGUE [None]
  - INFECTION [None]
  - PNEUMONIA [None]
